FAERS Safety Report 6381537-5 (Version None)
Quarter: 2009Q3

REPORT INFORMATION
  Report Type: 
  Country: None (occurrence: None)
  Receive Date: 20090925
  Receipt Date: 20090914
  Transmission Date: 20100115
  Serious: Yes (Life-Threatening, Hospitalization, Other)
  Sender: FDA-Public Use
  Company Number: ADR27952009

PATIENT
  Age: 78 Year
  Sex: Male

DRUGS (14)
  1. RAMIPRIL [Suspect]
     Indication: HYPERTENSION
     Dosage: 2.5 MG - 1/1 DAY
     Route: 048
     Dates: end: 20090909
  2. COTRIM [Concomitant]
  3. SPIRONOLACTONE [Concomitant]
  4. ALLOPURINOL [Concomitant]
  5. ASPIRIN [Concomitant]
  6. GLYCERYL TRINITRATE [Concomitant]
  7. ISOSORBIDE MONONITRATE [Concomitant]
  8. LACTULOSE [Concomitant]
  9. LANSOPRAZOLE [Concomitant]
  10. NOVOMIX [Concomitant]
  11. PROPRANOLOL [Concomitant]
  12. SUCRALFATE [Concomitant]
  13. TAMSULOSIN [Concomitant]
  14. THIAMINE HCL [Concomitant]

REACTIONS (2)
  - DRUG INTERACTION [None]
  - HYPERKALAEMIA [None]
